FAERS Safety Report 5160826-6 (Version None)
Quarter: 2006Q4

REPORT INFORMATION
  Report Type: 
  Country: None (occurrence: None)
  Receive Date: 20061121
  Receipt Date: 20061107
  Transmission Date: 20070319
  Serious: Yes (Life-Threatening)
  Sender: FDA-Public Use
  Company Number: 2006JP004611

PATIENT
  Age: 36 Year
  Sex: Female
  Weight: 71 kg

DRUGS (13)
  1. PROGRAF [Suspect]
     Dosage: 12 MG, ORAL
     Route: 048
  2. RAPAMUNE [Suspect]
     Dosage: ORAL
     Route: 048
  3. PREDNISONE [Suspect]
     Dosage: 10 MG, ORAL
     Route: 048
     Dates: start: 20060115
  4. MYCOPHENOLATE MOFETIL [Suspect]
     Dosage: 2 G, ORAL
     Route: 048
  5. PANADOL [Concomitant]
  6. ROSIGLITAZONE [Concomitant]
  7. ATORVASTATIN (ATORVASTATIN CALCIUM) [Concomitant]
  8. PERINDOPRIL ERBUMINE [Concomitant]
  9. CALCITRIOL [Concomitant]
  10. COLOXYL WITH SENNA (SENNOSIDE A+B, DOCUSATE SODIUM) [Concomitant]
  11. RABEPRAZOLE SODIUM [Concomitant]
  12. FERRO-GRADUMET (FERROUS SULFATE EXSICCATED) FOR PATCH [Concomitant]
  13. GLICAZIDE [Concomitant]

REACTIONS (3)
  - HEADACHE [None]
  - MENINGITIS CRYPTOCOCCAL [None]
  - VOMITING [None]
